FAERS Safety Report 4955311-8 (Version None)
Quarter: 2006Q1

REPORT INFORMATION
  Report Type: 
  Country: None (occurrence: None)
  Receive Date: 20060322
  Receipt Date: 20051018
  Transmission Date: 20060701
  Serious: Yes (Hospitalization, Other)
  Sender: FDA-Public Use
  Company Number: 2005130207

PATIENT
  Age: 66 Year
  Sex: Female

DRUGS (8)
  1. BEXTRA [Suspect]
     Indication: ARTHRALGIA
     Dosage: 1 D, ORAL
     Route: 048
     Dates: start: 20021012, end: 20021016
  2. CELEBREX [Suspect]
     Indication: ARTHRITIS
  3. VIOXX [Suspect]
     Indication: ARTHRITIS
  4. ZESTRIL [Concomitant]
  5. PREMARIN [Concomitant]
  6. PROVERA [Concomitant]
  7. DETROL LA [Concomitant]
  8. ATENOLOL [Concomitant]

REACTIONS (5)
  - DRUG INEFFECTIVE [None]
  - PNEUMONIA [None]
  - STEVENS-JOHNSON SYNDROME [None]
  - STRESS INCONTINENCE [None]
  - TOXIC EPIDERMAL NECROLYSIS [None]
